FAERS Safety Report 8206768-0 (Version None)
Quarter: 2012Q1

REPORT INFORMATION
  Report Type: 
  Country: None (occurrence: None)
  Receive Date: 20120309
  Receipt Date: 20120228
  Transmission Date: 20120608
  Serious: Yes (Disabling)
  Sender: FDA-Public Use
  Company Number: JP-1190670

PATIENT
  Age: 90 Year
  Sex: Female

DRUGS (4)
  1. LIVOSTIN [Concomitant]
  2. FLUOROMETHOLONE [Concomitant]
  3. TRAVATAN [Suspect]
     Indication: OCULAR HYPERTENSION
     Dosage: (1 GTT QD OU OPHTHALMIC
     Route: 047
     Dates: start: 20120210, end: 20120214
  4. AZOPT [Suspect]
     Indication: OCULAR HYPERTENSION
     Dosage: (1 GTT BID OPHTHALMIC
     Dates: start: 20120210, end: 20120214

REACTIONS (2)
  - DYSPHONIA [None]
  - DEAFNESS UNILATERAL [None]
